FAERS Safety Report 6844984-0 (Version None)
Quarter: 2010Q3

REPORT INFORMATION
  Report Type: 
  Country: None (occurrence: None)
  Receive Date: 20100713
  Receipt Date: 20100625
  Transmission Date: 20110219
  Serious: Yes (Other)
  Sender: FDA-Public Use
  Company Number: WAES 1006USA04091

PATIENT
  Age: 8 Year
  Sex: Male
  Weight: 24.0406 kg

DRUGS (4)
  1. ZOLINZA [Suspect]
     Indication: CENTRAL NERVOUS SYSTEM NEOPLASM
     Dosage: 230 MG/M[2]/DAILY/PO
     Route: 048
     Dates: start: 20100601, end: 20100612
  2. VELCADE [Suspect]
     Indication: CENTRAL NERVOUS SYSTEM NEOPLASM
     Dosage: 1.3 MG/M[2]/DAILY/IV
     Route: 042
     Dates: start: 20100601, end: 20100611
  3. PERIACTIN [Suspect]
     Indication: PRODUCT USED FOR UNKNOWN INDICATION
     Dosage: PO
     Route: 048
  4. DECADRON [Suspect]
     Indication: PRODUCT USED FOR UNKNOWN INDICATION
     Dosage: PO
     Route: 048

REACTIONS (3)
  - DELUSION [None]
  - HALLUCINATION [None]
  - PSYCHOTIC DISORDER [None]
